FAERS Safety Report 13869998 (Version 1)
Quarter: 2017Q3

REPORT INFORMATION
  Report Type: Spontaneous
  Country: FR (occurrence: FR)
  Receive Date: 20170815
  Receipt Date: 20170815
  Transmission Date: 20171127
  Serious: Yes (Hospitalization)
  Sender: FDA-Public Use
  Company Number: FR-PFIZER INC-2017344366

PATIENT
  Age: 51 Year
  Sex: Male

DRUGS (3)
  1. XANAX [Suspect]
     Active Substance: ALPRAZOLAM
     Dosage: UNK
  2. LEXOMIL ROCHE [Suspect]
     Active Substance: BROMAZEPAM
     Dosage: UNK
  3. LYSANXIA [Suspect]
     Active Substance: PRAZEPAM
     Dosage: UNK

REACTIONS (16)
  - Alcohol abuse [Recovering/Resolving]
  - Arthralgia [Unknown]
  - Osteoarthritis [Unknown]
  - Decreased appetite [Unknown]
  - Gout [Unknown]
  - Gamma-glutamyltransferase increased [Unknown]
  - Gastric polyps [Unknown]
  - Sleep disorder [Unknown]
  - Intentional product misuse [Recovering/Resolving]
  - Depressed mood [Unknown]
  - Head injury [Unknown]
  - Drug dependence [Recovering/Resolving]
  - Hepatic steatosis [Unknown]
  - Abdominal pain upper [Unknown]
  - Drug abuser [Recovering/Resolving]
  - Rash erythematous [Unknown]

NARRATIVE: CASE EVENT DATE: 1982
